FAERS Safety Report 7220611-8 (Version None)
Quarter: 2011Q1

REPORT INFORMATION
  Report Type: 
  Country: None (occurrence: None)
  Receive Date: 20110111
  Receipt Date: 20110105
  Transmission Date: 20110831
  Serious: Yes (Other)
  Sender: FDA-Public Use
  Company Number: US-PFIZER INC-2011003199

PATIENT
  Sex: Female
  Weight: 26.304 kg

DRUGS (3)
  1. KEPPRA [Suspect]
     Indication: CONVULSION
     Dosage: 750 MG, UNK
  2. DILANTIN [Suspect]
     Indication: CONVULSION
     Dosage: UNK
  3. PHENYTOIN [Suspect]
     Indication: CONVULSION
     Dosage: UNK

REACTIONS (8)
  - ANGER [None]
  - WEIGHT DECREASED [None]
  - MOOD SWINGS [None]
  - CONVULSION [None]
  - MALABSORPTION [None]
  - DEPRESSION [None]
  - VOMITING [None]
  - CATATONIA [None]
